FAERS Safety Report 5064483-9 (Version None)
Quarter: 2006Q3

REPORT INFORMATION
  Report Type: 
  Country: None (occurrence: None)
  Receive Date: 20060726
  Receipt Date: 20060714
  Transmission Date: 20061208
  Serious: Yes (Other)
  Sender: FDA-Public Use
  Company Number: 2006087512

PATIENT
  Age: 58 Year
  Sex: Female
  Weight: 109.7705 kg

DRUGS (7)
  1. LIPITOR [Suspect]
     Indication: BLOOD CHOLESTEROL INCREASED
     Dosage: 20 MG (20 MG, 1 IN 1 D)
  2. LASIX [Concomitant]
  3. PROTONIX [Concomitant]
  4. COSOPT [Concomitant]
  5. ENALAPRIL MALEATE [Concomitant]
  6. ASPIRIN [Concomitant]
  7. RELAXIN (SUXAMETHONIUM CHLORIDE) [Concomitant]

REACTIONS (3)
  - CARDIAC DISORDER [None]
  - DIABETES MELLITUS [None]
  - PAIN [None]
